FAERS Safety Report 8832127 (Version 1)
Quarter: 2012Q4

REPORT INFORMATION
  Report Type: 
  Country: US (occurrence: US)
  Receive Date: 20121009
  Receipt Date: 20121009
  Transmission Date: 20130627
  Serious: Yes (Hospitalization, Other)
  Sender: FDA-Public Use
  Company Number: US-SHIRE-ALL1-2012-04734

PATIENT
  Sex: Female

DRUGS (2)
  1. FIRAZYR [Suspect]
     Indication: HEREDITARY ANGIOEDEMA
     Dosage: UNK, Unknown
     Route: 058
  2. FIRAZYR [Suspect]
     Dosage: 30 mg, Unknown
     Route: 058
     Dates: start: 20120924, end: 20120924

REACTIONS (3)
  - Pancreatitis [Unknown]
  - Exposure during pregnancy [Not Recovered/Not Resolved]
  - Drug ineffective [Recovered/Resolved]
